FAERS Safety Report 9648874 (Version 2)
Quarter: 2013Q4

REPORT INFORMATION
  Report Type: Report from Study
  Country: ES (occurrence: ES)
  Receive Date: 20131028
  Receipt Date: 20131118
  Transmission Date: 20140711
  Serious: Yes (Hospitalization)
  Sender: FDA-Public Use
  Company Number: ES-PFIZER INC-2013303882

PATIENT
  Age: 66 Year
  Sex: Female

DRUGS (6)
  1. ALDACTONE [Suspect]
     Indication: ASCITES
     Dosage: 50 MG, 1X/DAY
     Route: 048
     Dates: start: 20120827, end: 20120917
  2. RAPAMUNE [Interacting]
     Indication: LIVER TRANSPLANT
     Dosage: 3 MG, 1X/DAY
     Route: 048
     Dates: start: 201208, end: 20120917
  3. ENALAPRIL [Interacting]
     Indication: HYPERTENSION
     Dosage: 10 MG, 1X/DAY
     Route: 048
     Dates: start: 201106, end: 20120917
  4. CELLCEPT [Interacting]
     Indication: LIVER TRANSPLANT
     Dosage: 500 MG, 2X/DAY
     Route: 048
     Dates: start: 201101, end: 20120917
  5. SUMIAL [Interacting]
     Indication: PROPHYLAXIS
     Dosage: 10 MG, 1X/DAY
     Route: 048
     Dates: start: 201208
  6. EUTIROX [Concomitant]
     Indication: HYPOTHYROIDISM
     Dosage: 100 UG, 1X/DAY
     Dates: start: 2006, end: 20120917

REACTIONS (3)
  - Renal failure acute [Recovered/Resolved]
  - Hyperkalaemia [Recovered/Resolved]
  - Drug interaction [Recovered/Resolved]
